FAERS Safety Report 6937676-0 (Version None)
Quarter: 2010Q3

REPORT INFORMATION
  Report Type: 
  Country: None (occurrence: None)
  Receive Date: 20100820
  Receipt Date: 20100820
  Transmission Date: 20110219
  Serious: Yes (Life-Threatening, Other)
  Sender: FDA-Public Use
  Company Number: None

PATIENT
  Sex: Female
  Weight: 72.5755 kg

DRUGS (4)
  1. CYMBALTA [Suspect]
     Indication: FIBROMYALGIA
     Dosage: 60 MG 1 X DAY PO
     Route: 048
     Dates: start: 20040401, end: 20100805
  2. CYMBALTA [Suspect]
     Indication: NERVE INJURY
     Dosage: 60 MG 1 X DAY PO
     Route: 048
     Dates: start: 20040401, end: 20100805
  3. CYMBALTA [Suspect]
     Indication: FIBROMYALGIA
     Dosage: 30 MG 1 X DAY PO
     Route: 048
     Dates: start: 20100806, end: 20100817
  4. CYMBALTA [Suspect]
     Indication: NERVE INJURY
     Dosage: 30 MG 1 X DAY PO
     Route: 048
     Dates: start: 20100806, end: 20100817

REACTIONS (16)
  - ABDOMINAL PAIN UPPER [None]
  - ABNORMAL BEHAVIOUR [None]
  - CRYING [None]
  - ECONOMIC PROBLEM [None]
  - FEELING OF BODY TEMPERATURE CHANGE [None]
  - GAIT DISTURBANCE [None]
  - HEADACHE [None]
  - IMPATIENCE [None]
  - INSOMNIA [None]
  - MALAISE [None]
  - NAUSEA [None]
  - PAIN [None]
  - PARAESTHESIA [None]
  - PRODUCT LABEL ISSUE [None]
  - SUICIDAL IDEATION [None]
  - WITHDRAWAL SYNDROME [None]
